FAERS Safety Report 19806169 (Version 1)
Quarter: 2021Q3

REPORT INFORMATION
  Report Type: Spontaneous
  Country: US (occurrence: US)
  Receive Date: 20210909
  Receipt Date: 20210909
  Transmission Date: 20211014
  Serious: No
  Sender: FDA-Public Use
  Company Number: US-SA-2021SA296170

PATIENT
  Age: 47 Year
  Sex: Male

DRUGS (2)
  1. COLESTIPOL [Interacting]
     Active Substance: COLESTIPOL
     Dosage: UNK
  2. AUBAGIO [Suspect]
     Active Substance: TERIFLUNOMIDE
     Indication: MULTIPLE SCLEROSIS
     Dosage: 14 MG, QD

REACTIONS (1)
  - Drug interaction [Unknown]
